FAERS Safety Report 23834213 (Version 3)
Quarter: 2024Q2

REPORT INFORMATION
  Report Type: Spontaneous
  Country: US (occurrence: US)
  Receive Date: 20240509
  Receipt Date: 20240628
  Transmission Date: 20240716
  Serious: Yes (Other)
  Sender: FDA-Public Use
  Company Number: US-ABBVIE-5747815

PATIENT
  Age: 69 Year
  Sex: Female
  Weight: 65 kg

DRUGS (9)
  1. BOTOX COSMETIC [Suspect]
     Active Substance: ONABOTULINUMTOXINA
     Indication: Skin wrinkling
     Dosage: TIME INTERVAL: AS NECESSARY
     Route: 065
     Dates: start: 20240329, end: 20240329
  2. BOTOX COSMETIC [Suspect]
     Active Substance: ONABOTULINUMTOXINA
     Indication: Skin wrinkling
     Dosage: TIME INTERVAL: AS NECESSARY
     Route: 065
  3. BOTOX COSMETIC [Suspect]
     Active Substance: ONABOTULINUMTOXINA
     Indication: Skin wrinkling
     Dosage: TIME INTERVAL: AS NECESSARY: START DATE TEXT: 5 YEARS AGO
     Route: 065
     Dates: start: 2019, end: 2019
  4. LISINOPRIL [Concomitant]
     Active Substance: LISINOPRIL
     Indication: Blood pressure abnormal
     Dosage: 10 MILLIGRAM
  5. LISINOPRIL [Concomitant]
     Active Substance: LISINOPRIL
     Indication: Blood pressure abnormal
  6. PRAVASTATIN [Concomitant]
     Active Substance: PRAVASTATIN
     Indication: Blood cholesterol increased
     Dosage: 10 MILLIGRAM
  7. PRAVASTATIN [Concomitant]
     Active Substance: PRAVASTATIN
     Indication: Blood cholesterol increased
  8. UPNEEQ [Concomitant]
     Active Substance: OXYMETAZOLINE HYDROCHLORIDE
     Indication: Eyelid ptosis
  9. REFRESH CLASSIC [Concomitant]
     Active Substance: POLYVINYL ALCOHOL\POVIDONE
     Indication: Product used for unknown indication

REACTIONS (12)
  - Blindness [Not Recovered/Not Resolved]
  - Eyelid ptosis [Not Recovered/Not Resolved]
  - Disturbance in attention [Not Recovered/Not Resolved]
  - Mastication disorder [Not Recovered/Not Resolved]
  - Facial paralysis [Unknown]
  - Speech disorder [Not Recovered/Not Resolved]
  - Dyspnoea [Not Recovered/Not Resolved]
  - Blood pressure increased [Not Recovered/Not Resolved]
  - Dysphonia [Not Recovered/Not Resolved]
  - Asthenia [Not Recovered/Not Resolved]
  - Diplopia [Not Recovered/Not Resolved]
  - Impaired driving ability [Not Recovered/Not Resolved]

NARRATIVE: CASE EVENT DATE: 20240401
